FAERS Safety Report 4976475-6 (Version None)
Quarter: 2006Q2

REPORT INFORMATION
  Report Type: 
  Country: None (occurrence: None)
  Receive Date: 20060412
  Receipt Date: 20060404
  Transmission Date: 20061013
  Serious: Yes (Other)
  Sender: FDA-Public Use
  Company Number: 2006046725

PATIENT
  Sex: Female
  Weight: 44.4525 kg

DRUGS (5)
  1. NORVASC [Suspect]
     Indication: HYPERTENSION
     Dosage: 5 MG (5 MG, QD INTERVAL:  EVERY DAY), ORAL
     Route: 048
     Dates: start: 20050901, end: 20050901
  2. TETANUS ANTITOXIN (TETANUS ANTITOXIN) [Suspect]
     Indication: ILL-DEFINED DISORDER
     Dosage: (ONCE)
     Dates: start: 20050901, end: 20050901
  3. METOPROLOL (METOPROLOL) [Concomitant]
  4. VITAMINS (VITAMINS) [Concomitant]
  5. MINERALS NOS (MINERALS NOS) [Concomitant]

REACTIONS (8)
  - ANAPHYLACTIC REACTION [None]
  - BLOOD CHOLESTEROL INCREASED [None]
  - DRUG EFFECT DECREASED [None]
  - DRUG INTERACTION [None]
  - HYPERTENSION [None]
  - SKIN DISORDER [None]
  - SKIN LACERATION [None]
  - VASCULAR BYPASS GRAFT [None]
